FAERS Safety Report 5511808-3 (Version None)
Quarter: 2007Q4

REPORT INFORMATION
  Report Type: 
  Country: None (occurrence: None)
  Receive Date: 20071109
  Receipt Date: 20071017
  Transmission Date: 20080405
  Serious: No
  Sender: FDA-Public Use
  Company Number: US-BOEHRINGER INGELHEIM PHARMACEUTICALS, INC.-2007-BP-22963BP

PATIENT
  Sex: Male

DRUGS (4)
  1. MELOXICAM TABLETS [Suspect]
     Indication: RHEUMATOID ARTHRITIS
     Route: 048
     Dates: start: 20071001, end: 20071001
  2. ASPIRIN [Concomitant]
     Indication: ROUTINE HEALTH MAINTENANCE
  3. VYTORIN [Concomitant]
     Indication: BLOOD CHOLESTEROL
  4. LISINOPRIL [Concomitant]
     Indication: HYPERTENSION

REACTIONS (2)
  - DRUG INEFFECTIVE [None]
  - STOMACH DISCOMFORT [None]
